FAERS Safety Report 6600352-8 (Version None)
Quarter: 2010Q1

REPORT INFORMATION
  Report Type: 
  Country: None (occurrence: None)
  Receive Date: 20100217
  Receipt Date: 20100209
  Transmission Date: 20100710
  Serious: Yes (Other)
  Sender: FDA-Public Use
  Company Number: 2010SP007751

PATIENT
  Age: 40 Year
  Sex: Female

DRUGS (1)
  1. DESLORATADINE [Suspect]
     Indication: URTICARIA CHRONIC
     Dosage: 1 DF;QD;PO
     Route: 048
     Dates: start: 20090101

REACTIONS (2)
  - MULTIPLE SCLEROSIS [None]
  - MYALGIA [None]
